FAERS Safety Report 13338847 (Version 1)
Quarter: 2017Q1

REPORT INFORMATION
  Report Type: Spontaneous
  Country: US (occurrence: US)
  Receive Date: 20170315
  Receipt Date: 20170315
  Transmission Date: 20170428
  Serious: No
  Sender: FDA-Public Use
  Company Number: US-DEPOMED, INC.-US-2016DEP011787

PATIENT

DRUGS (2)
  1. OMEPRAZOLE. [Concomitant]
     Active Substance: OMEPRAZOLE
     Indication: DYSPEPSIA
     Dosage: 40 MG, QD
     Route: 048
  2. GRALISE [Suspect]
     Active Substance: GABAPENTIN
     Indication: NEURALGIA
     Dosage: 300 MG, QD, TITRATED UP TO 1200 MG, QD
     Route: 048
     Dates: start: 20160811

REACTIONS (3)
  - Feeling abnormal [Not Recovered/Not Resolved]
  - Product use issue [Unknown]
  - Expired product administered [Unknown]

NARRATIVE: CASE EVENT DATE: 20160811
